FAERS Safety Report 7533060-X (Version None)
Quarter: 2011Q2

REPORT INFORMATION
  Report Type: 
  Country: None (occurrence: None)
  Receive Date: 20110608
  Receipt Date: 20110114
  Transmission Date: 20111010
  Serious: Yes (Life-Threatening, Other)
  Sender: FDA-Public Use
  Company Number: CZ-BAYER-2011-004619

PATIENT
  Age: 49 Year
  Sex: Female

DRUGS (7)
  1. DEXAMETHASONE [Concomitant]
  2. CORTICOSTEROIDS [Concomitant]
     Indication: PREMEDICATION
  3. LOZAP [LOSARTAN POTASSIUM] [Concomitant]
  4. IOPAMIDOL-370 [Suspect]
     Indication: COMPUTERISED TOMOGRAM ABDOMEN
     Dosage: 100 ML, ONCE
     Route: 042
     Dates: start: 20110103, end: 20110103
  5. LOSEPRAZOL [Concomitant]
  6. LOKREN [Concomitant]
  7. KALNORMIN [Concomitant]

REACTIONS (3)
  - RESPIRATORY ARREST [None]
  - RESTLESSNESS [None]
  - ERYTHEMA [None]
